FAERS Safety Report 8801488 (Version 2)
Quarter: 2015Q1

REPORT INFORMATION
  Report Type: Report from Study
  Country: US (occurrence: US)
  Receive Date: 20120921
  Receipt Date: 20150310
  Transmission Date: 20150721
  Serious: Yes (Death)
  Sender: FDA-Public Use
  Company Number: US-ROCHE-1123279

PATIENT
  Sex: Male

DRUGS (15)
  1. TAXOL [Concomitant]
     Active Substance: PACLITAXEL
     Route: 042
  2. TAGAMET [Concomitant]
     Active Substance: CIMETIDINE
     Route: 042
  3. DEXAMETHASONE. [Concomitant]
     Active Substance: DEXAMETHASONE
     Route: 042
  4. AVASTIN [Suspect]
     Active Substance: BEVACIZUMAB
     Dosage: 28/FEB/2007
     Route: 042
  5. CARBOPLATIN. [Concomitant]
     Active Substance: CARBOPLATIN
     Route: 042
  6. TAXOL [Concomitant]
     Active Substance: PACLITAXEL
     Route: 042
  7. ALOXI [Concomitant]
     Active Substance: PALONOSETRON HYDROCHLORIDE
     Route: 042
  8. AVASTIN [Suspect]
     Active Substance: BEVACIZUMAB
     Indication: GALLBLADDER CANCER
     Route: 042
     Dates: start: 20061129
  9. NEULASTA [Concomitant]
     Active Substance: PEGFILGRASTIM
     Route: 058
  10. BENADRYL [Concomitant]
     Active Substance: DIPHENHYDRAMINE HYDROCHLORIDE
     Route: 042
  11. ATIVAN [Concomitant]
     Active Substance: LORAZEPAM
     Route: 042
  12. CARBOPLATIN. [Concomitant]
     Active Substance: CARBOPLATIN
     Route: 042
  13. TAXOL [Concomitant]
     Active Substance: PACLITAXEL
     Route: 042
  14. AVASTIN [Suspect]
     Active Substance: BEVACIZUMAB
     Dosage: 10/JAN/2007
     Route: 042
  15. AVASTIN [Suspect]
     Active Substance: BEVACIZUMAB
     Dosage: 04/APR/2007
     Route: 042

REACTIONS (2)
  - Death [Fatal]
  - Off label use [Unknown]
